FAERS Safety Report 5187995-6 (Version None)
Quarter: 2006Q4

REPORT INFORMATION
  Report Type: 
  Country: None (occurrence: None)
  Receive Date: 20061221
  Receipt Date: 20061212
  Transmission Date: 20070319
  Serious: Yes (Other)
  Sender: FDA-Public Use
  Company Number: 2006UW28066

PATIENT
  Age: 74 Year
  Sex: Male

DRUGS (2)
  1. NAROPIN [Suspect]
  2. CATAPRES [Suspect]

REACTIONS (2)
  - FALL [None]
  - MUSCULAR WEAKNESS [None]
